FAERS Safety Report 24350773 (Version 1)
Quarter: 2024Q3

REPORT INFORMATION
  Report Type: Spontaneous
  Country: CN (occurrence: CN)
  Receive Date: 20240923
  Receipt Date: 20240923
  Transmission Date: 20241017
  Serious: No
  Sender: ROCHE
  Company Number: CN-ROCHE-3524838

PATIENT
  Age: 46 Year
  Sex: Female

DRUGS (11)
  1. HERCEPTIN [Suspect]
     Active Substance: TRASTUZUMAB
     Indication: Breast cancer
     Dosage: 450MG FOR THE FIRST TIME FOLLOWED BY 355 MG , 2CYCLES
     Route: 041
     Dates: start: 20230920, end: 20231012
  2. HERCEPTIN [Suspect]
     Active Substance: TRASTUZUMAB
     Dosage: 4 CYCLES
     Route: 041
     Dates: start: 20231102, end: 20240109
  3. HERCEPTIN [Suspect]
     Active Substance: TRASTUZUMAB
     Route: 041
     Dates: start: 20240222
  4. PERJETA [Suspect]
     Active Substance: PERTUZUMAB
     Indication: Breast cancer
     Dosage: 840MG FOR THE FIRST TIME FOLLOWED BY 420 MG , 2CYCLES
     Route: 042
     Dates: start: 20230920, end: 20231012
  5. PERJETA [Suspect]
     Active Substance: PERTUZUMAB
     Dosage: 4 CYCLES
     Route: 041
     Dates: start: 20231102, end: 20240109
  6. PERJETA [Suspect]
     Active Substance: PERTUZUMAB
     Dosage: EVERY 21 DAYS FOR 2 CYCLES
     Route: 041
     Dates: start: 20240222
  7. HERCEPTIN [Suspect]
     Active Substance: TRASTUZUMAB
     Indication: Breast cancer
     Dosage: A DRUG ASSISTANCE PROGRAM FOR HER2-POSITIVE EARLY BREAST CANCER PATIENTS
     Route: 058
     Dates: start: 202309
  8. PACLITAXEL [Concomitant]
     Active Substance: PACLITAXEL
     Indication: Breast cancer
     Dosage: 2 CYCLES
     Route: 042
     Dates: start: 20230920, end: 20231012
  9. PACLITAXEL [Concomitant]
     Active Substance: PACLITAXEL
     Dosage: 4 CYCLES
     Route: 042
     Dates: start: 20231102, end: 20240109
  10. CARBOPLATIN [Concomitant]
     Active Substance: CARBOPLATIN
     Indication: Breast cancer
     Dosage: 2 CYCLES, EVERY 21 DAYS
     Route: 042
     Dates: start: 20230920, end: 20231012
  11. CARBOPLATIN [Concomitant]
     Active Substance: CARBOPLATIN
     Dosage: 600MG FOR CYCLE3 AND CYCLE4, 500MG FOR CYCLE5 AND CYCLE 6 EVERY 21 DAYS
     Route: 042
     Dates: start: 20231102, end: 20240109

REACTIONS (3)
  - Platelet count decreased [Unknown]
  - Anaemia [Unknown]
  - Nausea [Unknown]
